FAERS Safety Report 4845392-4 (Version None)
Quarter: 2005Q4

REPORT INFORMATION
  Report Type: 
  Country: None (occurrence: None)
  Receive Date: 20051129
  Receipt Date: 20051114
  Transmission Date: 20060501
  Serious: Yes (Life-Threatening)
  Sender: FDA-Public Use
  Company Number: 001#3#2005-01924

PATIENT
  Age: 70 Year
  Sex: Female

DRUGS (2)
  1. FUROSEMIDE [Suspect]
     Indication: CARDIAC FAILURE
     Dosage: 40 MILLIGRAM, P.O.
     Route: 048
     Dates: start: 20050601
  2. XIPAMID                                (XIPAMIDE) [Suspect]
     Indication: CARDIAC FAILURE

REACTIONS (3)
  - ALKALOSIS HYPOCHLORAEMIC [None]
  - ELECTROCARDIOGRAM QT PROLONGED [None]
  - HYPOKALAEMIA [None]
